FAERS Safety Report 6140148-7 (Version None)
Quarter: 2009Q2

REPORT INFORMATION
  Report Type: 
  Country: None (occurrence: None)
  Receive Date: 20090401
  Receipt Date: 20090318
  Transmission Date: 20091009
  Serious: Yes (Death, Other)
  Sender: FDA-Public Use
  Company Number: FR-BRISTOL-MYERS SQUIBB COMPANY-14564496

PATIENT
  Age: 76 Year
  Sex: Female

DRUGS (3)
  1. CARBIDOPA + LEVODOPA [Suspect]
     Indication: PARKINSON'S DISEASE
     Dosage: 1 DF= 25/100MG
     Route: 048
  2. ENTACAPONE [Suspect]
     Indication: PARKINSON'S DISEASE
     Dosage: FORMULATION: TAB REINTRODUCED AT DOSE OF 200MG/DAY
     Route: 048
  3. VENLAFAXINE HCL [Concomitant]

REACTIONS (2)
  - COLITIS [None]
  - TREATMENT FAILURE [None]
